FAERS Safety Report 6696889-6 (Version None)
Quarter: 2010Q2

REPORT INFORMATION
  Report Type: 
  Country: None (occurrence: None)
  Receive Date: 20100426
  Receipt Date: 20100412
  Transmission Date: 20101027
  Serious: Yes (Hospitalization)
  Sender: FDA-Public Use
  Company Number: PHHY2010JP23308

PATIENT
  Sex: Female

DRUGS (14)
  1. DIOVAN [Suspect]
     Indication: HYPERTENSION
     Dosage: 80 MG, QD
     Route: 048
     Dates: start: 20071215, end: 20080316
  2. DIOVAN [Suspect]
     Dosage: 160 MG, QD
     Route: 048
     Dates: start: 20080317, end: 20091206
  3. NATRIX [Concomitant]
     Indication: HYPERTENSION
     Dosage: 1 MG, UNK
     Route: 048
     Dates: start: 20080510, end: 20080711
  4. CALBLOCK [Concomitant]
     Indication: HYPERTENSION
     Dosage: 16 MG, UNK
     Route: 048
     Dates: start: 20080710
  5. MYSLEE [Concomitant]
     Dosage: 5 MG, UNK
     Route: 048
     Dates: start: 20071215
  6. LOXONIN [Concomitant]
     Dosage: 3 DF, UNK
     Route: 048
     Dates: start: 20071215
  7. NEUROTROPIN [Concomitant]
     Dosage: 3 DF, UNK
     Route: 048
     Dates: start: 20071215
  8. TOLEDOMIN [Concomitant]
     Dosage: 50 MG, UNK
     Route: 048
     Dates: start: 20071215
  9. LIVALO KOWA [Concomitant]
     Dosage: 1 MG, UNK
     Route: 048
     Dates: start: 20071215
  10. MUCOSTA [Concomitant]
     Dosage: 3 DF, UNK
     Route: 048
     Dates: start: 20071215
  11. OMEPRAL [Concomitant]
     Dosage: 10 MG, UNK
     Route: 048
     Dates: start: 20071215
  12. GASMOTIN [Concomitant]
     Dosage: 15 MG, UNK
     Route: 048
     Dates: start: 20071215
  13. VESICARE [Concomitant]
     Dosage: 5 MG, UNK
     Route: 048
     Dates: start: 20071215
  14. PRORENAL [Concomitant]
     Dosage: 15 MG, UNK
     Route: 048
     Dates: start: 20071215

REACTIONS (2)
  - HYPERKALAEMIA [None]
  - LUMBAR SPINAL STENOSIS [None]
